FAERS Safety Report 10572845 (Version 1)
Quarter: 2014Q4

REPORT INFORMATION
  Report Type: Spontaneous
  Country: US (occurrence: None)
  Receive Date: 20141107
  Receipt Date: 20141107
  Transmission Date: 20150529
  Serious: No
  Sender: FDA-Public Use
  Company Number: None

PATIENT
  Age: 42 Year
  Sex: Female
  Weight: 55.79 kg

DRUGS (1)
  1. ZYRTEC [Suspect]
     Active Substance: CETIRIZINE HYDROCHLORIDE
     Indication: SEASONAL ALLERGY
     Dosage: NO PRESCRIPTION TAKEN BY MOUTH
     Route: 048
     Dates: start: 20141103, end: 20141103

REACTIONS (5)
  - Headache [None]
  - Pyrexia [None]
  - Rash papular [None]
  - Malaise [None]
  - Nasopharyngitis [None]

NARRATIVE: CASE EVENT DATE: 20141103
